FAERS Safety Report 22537416 (Version 1)
Quarter: 2023Q2

REPORT INFORMATION
  Report Type: Spontaneous
  Country: US (occurrence: US)
  Receive Date: 20230608
  Receipt Date: 20230608
  Transmission Date: 20230722
  Serious: Yes (Life-Threatening, Hospitalization)
  Sender: FDA-Public Use
  Company Number: US-TEVA-2023-US-2893327

PATIENT
  Age: 54 Year
  Sex: Female

DRUGS (2)
  1. FENTANYL [Suspect]
     Active Substance: FENTANYL
     Indication: Opiates
     Route: 065
  2. NALOXONE [Suspect]
     Active Substance: NALOXONE
     Indication: CHANTER syndrome
     Route: 065

REACTIONS (5)
  - CHANTER syndrome [Recovering/Resolving]
  - Overdose [Unknown]
  - Toxicity to various agents [Unknown]
  - Drug ineffective [Unknown]
  - Encephalopathy [Unknown]
